FAERS Safety Report 10026540 (Version 2)
Quarter: 2014Q2

REPORT INFORMATION
  Report Type: Spontaneous
  Country: US (occurrence: US)
  Receive Date: 20140321
  Receipt Date: 20140428
  Transmission Date: 20141212
  Serious: Yes (Other)
  Sender: FDA-Public Use
  Company Number: US-BIOGENIDEC-2014BI024168

PATIENT
  Age: 63 Year
  Sex: Female

DRUGS (8)
  1. TECFIDERA [Suspect]
     Indication: MULTIPLE SCLEROSIS
     Route: 048
     Dates: start: 20130521, end: 201403
  2. SERTRALINE [Concomitant]
  3. CLONAZEPAM [Concomitant]
     Route: 048
  4. BACLOFEN [Concomitant]
     Route: 048
  5. REGLAN [Concomitant]
     Route: 048
  6. CARBAMAZEPINE [Concomitant]
     Route: 048
  7. REQUIP [Concomitant]
     Route: 048
  8. VITAMIN D3 [Concomitant]
     Route: 048

REACTIONS (3)
  - Breast cancer [Unknown]
  - Drug intolerance [Unknown]
  - Cardiac arrest [Not Recovered/Not Resolved]
